FAERS Safety Report 4649134-7 (Version None)
Quarter: 2005Q2

REPORT INFORMATION
  Report Type: 
  Country: None (occurrence: None)
  Receive Date: 20050429
  Receipt Date: 20050426
  Transmission Date: 20051028
  Serious: Yes (Disabling)
  Sender: FDA-Public Use
  Company Number: GB-GLAXOSMITHKLINE-B0379368A

PATIENT
  Age: 71 Year
  Sex: Female

DRUGS (3)
  1. AMOXICILLIN [Suspect]
     Indication: TOOTH INFECTION
     Dosage: 250MG THREE TIMES PER DAY
     Route: 048
     Dates: start: 20031201, end: 20031201
  2. ASPIRIN [Concomitant]
     Dosage: 75MG PER DAY
     Route: 048
     Dates: start: 20040209
  3. BENDROFLUAZIDE [Concomitant]
     Dosage: 2.5MG PER DAY
     Route: 048
     Dates: start: 19950310

REACTIONS (2)
  - COORDINATION ABNORMAL [None]
  - DYSPHASIA [None]
